FAERS Safety Report 5110035-1 (Version None)
Quarter: 2006Q3

REPORT INFORMATION
  Report Type: 
  Country: None (occurrence: None)
  Receive Date: 20060918
  Receipt Date: 20060911
  Transmission Date: 20061208
  Serious: Yes (Life-Threatening)
  Sender: FDA-Public Use
  Company Number: 2006S1000183

PATIENT
  Age: 1 Day
  Sex: Male

DRUGS (9)
  1. NITRIC OXIDE (NITRIC OXIDE) [Suspect]
     Indication: LUNG DISORDER
     Dosage: 5 PPM; INH_GAS; INH; CONT INH
     Route: 055
     Dates: start: 20060910
  2. NITRIC OXIDE (NITRIC OXIDE) [Suspect]
     Indication: PROPHYLAXIS
     Dosage: 5 PPM; INH_GAS; INH; CONT INH
     Route: 055
     Dates: start: 20060910
  3. AMPICILLIN [Concomitant]
  4. AMIKACIN [Concomitant]
  5. SURVANTA [Concomitant]
  6. DOPAMINE HCL [Concomitant]
  7. FENTANYL [Concomitant]
  8. SODIUM BICARBONATE IN PLASTIC CONTAINER [Concomitant]
  9. SANDOGLOBULIN [Concomitant]

REACTIONS (8)
  - BETA HAEMOLYTIC STREPTOCOCCAL INFECTION [None]
  - GENERAL PHYSICAL HEALTH DETERIORATION [None]
  - HYPOTENSION [None]
  - HYPOXIA [None]
  - PNEUMOTHORAX [None]
  - POOR PERIPHERAL CIRCULATION [None]
  - PULMONARY HYPERTENSION [None]
  - SEPSIS NEONATAL [None]
